FAERS Safety Report 6472482-5 (Version None)
Quarter: 2009Q4

REPORT INFORMATION
  Report Type: 
  Country: None (occurrence: None)
  Receive Date: 20091130
  Receipt Date: 20091123
  Transmission Date: 20100525
  Serious: Yes (Death, Other)
  Sender: FDA-Public Use
  Company Number: GB-EBEWE-1783MTX09

PATIENT
  Age: 18 Month
  Sex: Female

DRUGS (8)
  1. METHOTREXATE [Suspect]
     Indication: PROPHYLAXIS AGAINST GRAFT VERSUS HOST DISEASE
  2. ALEMTUZUMAB [Suspect]
     Indication: PROPHYLAXIS AGAINST GRAFT VERSUS HOST DISEASE
  3. BUSULFAN [Concomitant]
  4. CYCLOSPORINE [Concomitant]
  5. CLOFARABINE [Concomitant]
  6. CYCLOPHOSPHAMIDE [Concomitant]
  7. DAUNORUBICIN [Concomitant]
  8. MELPHALAN [Concomitant]

REACTIONS (5)
  - LEUKAEMIA RECURRENT [None]
  - PNEUMONIA ADENOVIRAL [None]
  - PULMONARY HYPERTENSION [None]
  - RENAL IMPAIRMENT [None]
  - STEM CELL TRANSPLANT [None]
